FAERS Safety Report 13036021 (Version 7)
Quarter: 2018Q4

REPORT INFORMATION
  Report Type: Spontaneous
  Country: JP (occurrence: JP)
  Receive Date: 20161216
  Receipt Date: 20181002
  Transmission Date: 20190204
  Serious: Yes (Hospitalization, Other)
  Sender: FDA-Public Use
  Company Number: JP-JNJFOC-20161213676

PATIENT
  Age: 60 Year
  Sex: Male
  Weight: 68 kg

DRUGS (5)
  1. CANAGLIFLOZIN [Suspect]
     Active Substance: CANAGLIFLOZIN
     Indication: TYPE 2 DIABETES MELLITUS
     Route: 048
     Dates: start: 20160730
  2. CANAGLIFLOZIN [Suspect]
     Active Substance: CANAGLIFLOZIN
     Indication: TYPE 2 DIABETES MELLITUS
     Route: 048
     Dates: start: 20160527, end: 20160714
  3. URSO [Concomitant]
     Active Substance: URSODIOL
     Route: 048
     Dates: start: 20160417
  4. AMLODIN [Concomitant]
     Active Substance: AMLODIPINE BESYLATE
     Route: 048
     Dates: start: 20161111
  5. AMLODIN [Concomitant]
     Active Substance: AMLODIPINE BESYLATE
     Route: 048
     Dates: start: 20161014, end: 20161110

REACTIONS (8)
  - Pancreatitis acute [Recovered/Resolved]
  - Blood ketone body increased [Recovered/Resolved]
  - White blood cells urine [Unknown]
  - Cholecystitis acute [Recovered/Resolved]
  - Urine phosphorus abnormal [Unknown]
  - Urine ketone body present [Recovered/Resolved]
  - Crystal urine present [Recovered/Resolved]
  - Urinary sediment present [Recovered/Resolved]

NARRATIVE: CASE EVENT DATE: 20160623
